FAERS Safety Report 21969719 (Version 4)
Quarter: 2023Q1

REPORT INFORMATION
  Report Type: Report from Study
  Country: CA (occurrence: CA)
  Receive Date: 20230208
  Receipt Date: 20230324
  Transmission Date: 20230417
  Serious: Yes (Other)
  Sender: FDA-Public Use
  Company Number: CA-GILEAD-2023-0615877

PATIENT
  Sex: Female

DRUGS (2)
  1. SACITUZUMAB GOVITECAN-HZIY [Suspect]
     Active Substance: SACITUZUMAB GOVITECAN-HZIY
     Indication: Triple negative breast cancer
     Dosage: 460 MG
     Route: 042
     Dates: start: 20230106, end: 20230127
  2. SACITUZUMAB GOVITECAN-HZIY [Suspect]
     Active Substance: SACITUZUMAB GOVITECAN-HZIY
     Dosage: 460 MG
     Route: 042
     Dates: start: 20230217, end: 20230309

REACTIONS (3)
  - Neutrophil count abnormal [Unknown]
  - Disease progression [Unknown]
  - Inappropriate schedule of product administration [Unknown]
